FAERS Safety Report 17629124 (Version 5)
Quarter: 2020Q2

REPORT INFORMATION
  Report Type: Report from Study
  Country: TW (occurrence: TW)
  Receive Date: 20200406
  Receipt Date: 20200618
  Transmission Date: 20200713
  Serious: Yes (Other)
  Sender: FDA-Public Use
  Company Number: TW-ROCHE-2525465

PATIENT
  Age: 59 Year
  Sex: Male
  Weight: 57.2 kg

DRUGS (12)
  1. ADRIAMYCIN [Suspect]
     Active Substance: DOXORUBICIN HYDROCHLORIDE
     Indication: TRANSITIONAL CELL CARCINOMA
     Route: 065
     Dates: start: 20181225, end: 20191105
  2. EPIRUBICIN [Concomitant]
     Active Substance: EPIRUBICIN
     Route: 041
     Dates: start: 20180926
  3. DEXAN [DEXAMETHASONE] [Concomitant]
     Route: 042
     Dates: start: 20180926
  4. FILGRASTIM [Concomitant]
     Active Substance: FILGRASTIM
     Route: 058
     Dates: start: 20200609
  5. TECENTRIQ [Suspect]
     Active Substance: ATEZOLIZUMAB
     Indication: TRANSITIONAL CELL CARCINOMA
     Route: 041
     Dates: start: 20180925
  6. ENTECAVIR. [Concomitant]
     Active Substance: ENTECAVIR
     Indication: HEPATITIS B
  7. PACLITAXEL. [Concomitant]
     Active Substance: PACLITAXEL
     Indication: TRANSITIONAL CELL CARCINOMA
     Route: 065
     Dates: start: 20180612, end: 20181204
  8. SILYMARIN [SILYBUM MARIANUM] [Concomitant]
     Route: 048
     Dates: start: 20200107
  9. HEPARIN [Concomitant]
     Active Substance: HEPARIN SODIUM
     Dosage: 100 U/ML
     Route: 042
     Dates: start: 20200107, end: 20200107
  10. TECENTRIQ [Suspect]
     Active Substance: ATEZOLIZUMAB
     Dosage: IN 0.9% NACL 250 ML, IVF RUN 60 MINUTES
     Route: 042
  11. ALOXI [Concomitant]
     Active Substance: PALONOSETRON HYDROCHLORIDE
     Route: 042
     Dates: start: 20180926
  12. GEMCITABINE. [Concomitant]
     Active Substance: GEMCITABINE

REACTIONS (13)
  - Pancytopenia [Recovered/Resolved]
  - Diabetes mellitus [Unknown]
  - Neutropenia [Not Recovered/Not Resolved]
  - Asthenia [Unknown]
  - Pruritus [Recovered/Resolved]
  - Gait inability [Unknown]
  - Mucosal inflammation [Recovered/Resolved]
  - Deep vein thrombosis [Unknown]
  - Pulmonary oedema [Unknown]
  - Dyspnoea [Unknown]
  - Hyperglycaemia [Not Recovered/Not Resolved]
  - Platelet disorder [Recovered/Resolved]
  - Malaise [Unknown]

NARRATIVE: CASE EVENT DATE: 20190122
